FAERS Safety Report 14587221 (Version 1)
Quarter: 2018Q1

REPORT INFORMATION
  Report Type: Spontaneous
  Country: US (occurrence: US)
  Receive Date: 20180228
  Receipt Date: 20180228
  Transmission Date: 20180509
  Serious: No
  Sender: FDA-Public Use
  Company Number: None

PATIENT
  Age: 62 Year
  Sex: Female
  Weight: 100 kg

DRUGS (1)
  1. IBRANCE [Suspect]
     Active Substance: PALBOCICLIB
     Indication: BREAST CANCER
     Dosage: FREQUENCY - 1CQD
     Route: 048
     Dates: start: 20171208

REACTIONS (2)
  - Weight increased [None]
  - Pulmonary oedema [None]

NARRATIVE: CASE EVENT DATE: 20171222
